FAERS Safety Report 7774588-7 (Version None)
Quarter: 2011Q3

REPORT INFORMATION
  Report Type: 
  Country: None (occurrence: None)
  Receive Date: 20110923
  Receipt Date: 20110913
  Transmission Date: 20111222
  Serious: Yes (Hospitalization)
  Sender: FDA-Public Use
  Company Number: US-PFIZER INC-2011214459

PATIENT
  Sex: Male
  Weight: 78.005 kg

DRUGS (10)
  1. SYNTHROID [Concomitant]
     Indication: HYPOTHYROIDISM
     Dosage: UNK
     Dates: start: 20100101
  2. SUNITINIB MALATE [Suspect]
     Indication: RENAL CELL CARCINOMA
     Dosage: 37.5 MG, 1X/DAY, 4/2 SCHEDULE
     Route: 048
     Dates: start: 20100805, end: 20110909
  3. MEGACE [Concomitant]
     Indication: DECREASED APPETITE
     Dosage: UNK
     Dates: start: 20100101
  4. LASIX [Concomitant]
     Indication: OEDEMA PERIPHERAL
     Dosage: UNK
     Dates: start: 20100101
  5. XALATAN [Concomitant]
     Indication: GLAUCOMA
     Dosage: UNK
     Dates: start: 20070101
  6. OPIUM TINCTURE [Concomitant]
     Indication: DIARRHOEA
     Dosage: UNK
     Dates: start: 20100101
  7. PF-04856884 [Suspect]
     Indication: RENAL CELL CARCINOMA
     Dosage: 1201 MG, ONCE WEEKLY
     Route: 042
     Dates: start: 20100805, end: 20110830
  8. VASOTEC [Concomitant]
     Indication: HYPERTENSION
     Dosage: UNK
     Dates: start: 20100101
  9. FAMOTIDINE [Concomitant]
     Indication: GASTROOESOPHAGEAL REFLUX DISEASE
     Dosage: UNK
     Dates: start: 20110101
  10. BETIMOL [Concomitant]
     Indication: GLAUCOMA
     Dosage: UNK
     Dates: start: 20070101

REACTIONS (1)
  - ISCHAEMIC STROKE [None]
